FAERS Safety Report 4572198-6 (Version None)
Quarter: 2005Q1

REPORT INFORMATION
  Report Type: 
  Country: None (occurrence: None)
  Receive Date: 20050202
  Receipt Date: 20050111
  Transmission Date: 20050727
  Serious: Yes (Other)
  Sender: FDA-Public Use
  Company Number: USA041080750

PATIENT
  Age: 34 Year
  Sex: Male
  Weight: 156 kg

DRUGS (4)
  1. CYMBALTA [Suspect]
     Indication: MAJOR DEPRESSION
     Dosage: 60 MG DAY
     Dates: end: 20041101
  2. XANAX (ALPRAZOLAM DUM) [Concomitant]
  3. KLONOPIN [Concomitant]
  4. DEPAKENE [Concomitant]

REACTIONS (2)
  - DEHYDRATION [None]
  - SYNCOPE [None]
